FAERS Safety Report 25102589 (Version 1)
Quarter: 2025Q1

REPORT INFORMATION
  Report Type: Spontaneous
  Country: CA (occurrence: CA)
  Receive Date: 20250321
  Receipt Date: 20250321
  Transmission Date: 20250408
  Serious: Yes (Life-Threatening, Other)
  Sender: ALEXION PHARMACEUTICALS
  Company Number: CA-AstraZeneca-CH-00830371AP

PATIENT
  Age: 42 Year

DRUGS (1)
  1. SYMBICORT [Suspect]
     Active Substance: BUDESONIDE\FORMOTEROL FUMARATE DIHYDRATE
     Indication: Chronic obstructive pulmonary disease
     Dosage: 200 MICROGRAM, QID

REACTIONS (10)
  - Accident [Unknown]
  - Pneumonitis [Unknown]
  - Respiratory failure [Unknown]
  - Multiple fractures [Unknown]
  - Hyperhidrosis [Unknown]
  - Sensory loss [Unknown]
  - Device issue [Unknown]
  - Device use issue [Unknown]
  - Device delivery system issue [Unknown]
  - Wrong technique in device usage process [Unknown]
